FAERS Safety Report 4592056-0 (Version None)
Quarter: 2005Q1

REPORT INFORMATION
  Report Type: 
  Country: None (occurrence: None)
  Receive Date: 20050225
  Receipt Date: 20050218
  Transmission Date: 20050727
  Serious: Yes (Life-Threatening)
  Sender: FDA-Public Use
  Company Number: IT-GLAXOSMITHKLINE-B0372809A

PATIENT
  Age: 80 Year
  Sex: Female

DRUGS (7)
  1. AUGMENTIN '125' [Suspect]
     Indication: TRACHEOBRONCHITIS
     Route: 048
     Dates: start: 20050126, end: 20050127
  2. ASPIRIN [Concomitant]
  3. CITALOPRAM HYDROBROMIDE [Concomitant]
  4. FRUSEMIDE [Concomitant]
  5. LEVODOPA [Concomitant]
  6. MIRTAZAPINE [Concomitant]
  7. PERGOLIDE MESYLATE [Concomitant]

REACTIONS (1)
  - MELAENA [None]
